FAERS Safety Report 13442692 (Version 1)
Quarter: 2017Q2

REPORT INFORMATION
  Report Type: Spontaneous
  Country: US (occurrence: US)
  Receive Date: 20170413
  Receipt Date: 20170413
  Transmission Date: 20170830
  Serious: Yes (Life-Threatening)
  Sender: FDA-Public Use
  Company Number: None

PATIENT
  Age: 67 Year
  Sex: Female
  Weight: 91.8 kg

DRUGS (5)
  1. HYDROCHLOROTHIAZIDE. [Concomitant]
     Active Substance: HYDROCHLOROTHIAZIDE
  2. LISINOPRIL. [Concomitant]
     Active Substance: LISINOPRIL
  3. JARDIANCE [Suspect]
     Active Substance: EMPAGLIFLOZIN
     Indication: TYPE 2 DIABETES MELLITUS
     Dosage: ?          QUANTITY:30 TABLET(S);?
     Route: 048
     Dates: start: 20170322
  4. VITAMIN B12 [Concomitant]
     Active Substance: CYANOCOBALAMIN
  5. TRULICITY [Suspect]
     Active Substance: DULAGLUTIDE
     Indication: TYPE 2 DIABETES MELLITUS
     Dosage: ?          QUANTITY:0.5 ML;OTHER FREQUENCY:WEEKLY;OTHER ROUTE:SUBCUTANEOUS?
     Route: 058
     Dates: start: 20170323

REACTIONS (10)
  - Diarrhoea [None]
  - Hypotension [None]
  - Oesophageal obstruction [None]
  - Asthenia [None]
  - Nausea [None]
  - Vomiting [None]
  - Blood glucose increased [None]
  - Pruritus [None]
  - Paraesthesia [None]
  - Rash macular [None]

NARRATIVE: CASE EVENT DATE: 20170323
